FAERS Safety Report 4982814-2 (Version None)
Quarter: 2006Q2

REPORT INFORMATION
  Report Type: 
  Country: None (occurrence: None)
  Receive Date: 20060420
  Receipt Date: 20060403
  Transmission Date: 20061013
  Serious: Yes (Other)
  Sender: FDA-Public Use
  Company Number: ACO_0224_2006

PATIENT
  Age: 58 Year
  Sex: Female
  Weight: 114.3065 kg

DRUGS (11)
  1. ZANAFLEX [Suspect]
     Indication: MUSCLE SPASMS
     Dosage: 4 MG QHS PO
     Route: 048
     Dates: start: 20051227, end: 20060101
  2. ZIAC [Concomitant]
  3. FLONASE [Concomitant]
  4. PREMARIN [Concomitant]
  5. SINGULAIR [Concomitant]
  6. LISINOPRIL [Concomitant]
  7. TENORETIC 100 [Concomitant]
  8. FLOVENT [Concomitant]
  9. ALBUTEROL [Concomitant]
  10. FLEXERIL [Concomitant]
  11. KLONOPIN [Concomitant]

REACTIONS (12)
  - ALANINE AMINOTRANSFERASE INCREASED [None]
  - ALBUMIN GLOBULIN RATIO DECREASED [None]
  - ASPARTATE AMINOTRANSFERASE INCREASED [None]
  - BILIRUBIN CONJUGATED INCREASED [None]
  - BLOOD ALKALINE PHOSPHATASE INCREASED [None]
  - BLOOD UREA INCREASED [None]
  - BLOOD UREA NITROGEN/CREATININE RATIO INCREASED [None]
  - CHROMATURIA [None]
  - EOSINOPHIL PERCENTAGE INCREASED [None]
  - FATIGUE [None]
  - LYMPHOCYTE PERCENTAGE DECREASED [None]
  - NAUSEA [None]
